FAERS Safety Report 16777000 (Version 2)
Quarter: 2019Q3

REPORT INFORMATION
  Report Type: Spontaneous
  Country: US (occurrence: US)
  Receive Date: 20190905
  Receipt Date: 20190920
  Transmission Date: 20191005
  Serious: No
  Sender: FDA-Public Use
  Company Number: US-PFIZER INC-2019380198

PATIENT
  Age: 68 Year
  Sex: Female
  Weight: 93 kg

DRUGS (3)
  1. LEVOTHYROXINE. [Concomitant]
     Active Substance: LEVOTHYROXINE
     Indication: THYROID DISORDER
     Dosage: 0.125 MG, UNK
     Dates: start: 1977
  2. EFFEXOR XR [Suspect]
     Active Substance: VENLAFAXINE HYDROCHLORIDE
     Indication: DEPRESSION
     Dosage: 75 MG, 1X/DAY
     Route: 048
     Dates: start: 2003
  3. EFFEXOR XR [Suspect]
     Active Substance: VENLAFAXINE HYDROCHLORIDE
     Indication: ANXIETY
     Dosage: 150 MG, UNK

REACTIONS (9)
  - Headache [Unknown]
  - Feeling jittery [Unknown]
  - Nasopharyngitis [Unknown]
  - Depression [Unknown]
  - Dizziness [Recovering/Resolving]
  - Depressed mood [Unknown]
  - Wrong technique in product usage process [Unknown]
  - Nausea [Unknown]
  - Anger [Unknown]

NARRATIVE: CASE EVENT DATE: 2018
